FAERS Safety Report 6980741-2 (Version None)
Quarter: 2010Q3

REPORT INFORMATION
  Report Type: 
  Country: None (occurrence: None)
  Receive Date: 20100909
  Receipt Date: 20090720
  Transmission Date: 20110219
  Serious: Yes (Other)
  Sender: FDA-Public Use
  Company Number: LEO-2010-00809

PATIENT
  Age: 38 Year
  Sex: Female
  Weight: 113.3 kg

DRUGS (3)
  1. INNOHEP [Suspect]
     Indication: THROMBOSIS PROPHYLAXIS
     Dosage: 4500 IU (1 IN 1 D)
     Dates: start: 20050120, end: 20050611
  2. SYTOMETRINE (OXYTOCIN, ERGOMETRINE) [Concomitant]
  3. SYNTOCINON [Concomitant]

REACTIONS (3)
  - DRUG EXPOSURE DURING PREGNANCY [None]
  - PREGNANCY [None]
  - SKIN ULCER [None]
